FAERS Safety Report 5329480-4 (Version None)
Quarter: 2007Q2

REPORT INFORMATION
  Report Type: 
  Country: None (occurrence: None)
  Receive Date: 20070221
  Receipt Date: 20060526
  Transmission Date: 20071010
  Serious: Yes (Other)
  Sender: FDA-Public Use
  Company Number: BDI-008290

PATIENT
  Age: 37 Year
  Sex: Female
  Weight: 71.8 kg

DRUGS (2)
  1. ISOVUE-M 200 [Suspect]
     Indication: NECK PAIN
     Dosage: 12 ML ONCE IT
     Route: 037
     Dates: start: 20060505, end: 20060505
  2. ISOVUE-M 200 [Suspect]
     Indication: SPINAL MYELOGRAM
     Dosage: 12 ML ONCE IT
     Route: 037
     Dates: start: 20060505, end: 20060505

REACTIONS (4)
  - HEADACHE [None]
  - NAUSEA [None]
  - NECK PAIN [None]
  - VOMITING [None]
